FAERS Safety Report 8163577 (Version 9)
Quarter: 2013Q1

REPORT INFORMATION
  Report Type: Spontaneous
  Country: CA (occurrence: CA)
  Receive Date: 20110930
  Receipt Date: 20130213
  Transmission Date: 20140127
  Serious: Yes (Hospitalization)
  Sender: FDA-Public Use
  Company Number: CA-GLAXOSMITHKLINE-A0904235A

PATIENT
  Age: 81 None
  Sex: Female

DRUGS (10)
  1. TYKERB [Suspect]
     Indication: BREAST CANCER METASTATIC
     Dosage: 1250MG PER DAY
     Route: 048
     Dates: start: 20090913, end: 20130102
  2. XELODA [Suspect]
     Indication: PRODUCT USED FOR UNKNOWN INDICATION
     Dosage: 800MG TWICE PER DAY
     Route: 065
     Dates: start: 20090913, end: 20130102
  3. FEMARA [Concomitant]
  4. PANTOLOC [Concomitant]
  5. DOMPERIDONE [Concomitant]
  6. MAGNESIUM [Concomitant]
  7. POTASSIUM [Concomitant]
  8. FRAGMIN [Concomitant]
  9. ATIVAN [Concomitant]
  10. AVEENO CREAM [Concomitant]

REACTIONS (26)
  - Blood calcium decreased [Unknown]
  - Blood potassium decreased [Unknown]
  - Breast discharge [Not Recovered/Not Resolved]
  - Wound [Not Recovered/Not Resolved]
  - Wound infection [Not Recovered/Not Resolved]
  - Ear infection [Not Recovered/Not Resolved]
  - Radiation skin injury [Recovered/Resolved]
  - Erythema [Not Recovered/Not Resolved]
  - Dry skin [Not Recovered/Not Resolved]
  - Eczema [Recovered/Resolved]
  - Diarrhoea [Recovered/Resolved]
  - Oropharyngeal pain [Not Recovered/Not Resolved]
  - Rhinitis [Not Recovered/Not Resolved]
  - Pain in extremity [Unknown]
  - Nail infection [Unknown]
  - Onychomadesis [Unknown]
  - Arthritis [Unknown]
  - Metastases to bone [Unknown]
  - Decreased appetite [Unknown]
  - Palmar-plantar erythrodysaesthesia syndrome [Unknown]
  - Skin lesion [Not Recovered/Not Resolved]
  - Pruritus [Not Recovered/Not Resolved]
  - Infection [Not Recovered/Not Resolved]
  - Crying [Not Recovered/Not Resolved]
  - Depressed mood [Not Recovered/Not Resolved]
  - Skin disorder [Unknown]
